FAERS Safety Report 24458312 (Version 1)
Quarter: 2024Q4

REPORT INFORMATION
  Report Type: Report from Study
  Country: CA (occurrence: CA)
  Receive Date: 20241018
  Receipt Date: 20241018
  Transmission Date: 20250115
  Serious: No
  Sender: ROCHE
  Company Number: CA-ROCHE-3523049

PATIENT
  Age: 72 Year
  Sex: Female

DRUGS (7)
  1. RITUXAN [Suspect]
     Active Substance: RITUXIMAB
     Indication: Rheumatoid arthritis
     Dosage: LAST INFUSION GIVEN: 08/AUG/2023? FREQUENCY TEXT:DAY 1, 15
     Route: 041
     Dates: start: 20150928, end: 20230127
  2. RUXIENCE [Suspect]
     Active Substance: RITUXIMAB-PVVR
     Indication: Rheumatoid arthritis
     Dosage: LAST INFUSION GIVEN: 08/AUG/2023? FREQUENCY TEXT:DAY 1, 15
     Route: 042
     Dates: start: 20230726
  3. QUINAPRIL HYDROCHLORIDE [Concomitant]
     Active Substance: QUINAPRIL HYDROCHLORIDE
  4. BISOPROLOL [Concomitant]
     Active Substance: BISOPROLOL\BISOPROLOL FUMARATE
  5. COVID VACCINE (UNKNOWN) [Concomitant]
     Indication: COVID-19 prophylaxis
     Dates: start: 20210626, end: 20210626
  6. COVID VACCINE (UNKNOWN) [Concomitant]
     Dates: start: 20220113, end: 20220113
  7. WARFARIN [Concomitant]
     Active Substance: WARFARIN

REACTIONS (1)
  - Rheumatoid arthritis [Unknown]

NARRATIVE: CASE EVENT DATE: 20240101
